FAERS Safety Report 8111269-4 (Version None)
Quarter: 2012Q1

REPORT INFORMATION
  Report Type: 
  Country: None (occurrence: None)
  Receive Date: 20120203
  Receipt Date: 20110726
  Transmission Date: 20120608
  Serious: Yes (Other)
  Sender: FDA-Public Use
  Company Number: US-GLAXOSMITHKLINE-A0938381A

PATIENT
  Age: 27 Year
  Sex: Male

DRUGS (4)
  1. VIMPAT [Concomitant]
  2. LAMOTRIGINE [Suspect]
     Indication: CONVULSION
     Dosage: 300MG TWICE PER DAY
     Route: 048
     Dates: start: 20090101
  3. ZONEGRAN [Concomitant]
  4. KEPPRA [Concomitant]

REACTIONS (1)
  - CONVULSION [None]
